FAERS Safety Report 6074481-4 (Version None)
Quarter: 2009Q1

REPORT INFORMATION
  Report Type: 
  Country: None (occurrence: None)
  Receive Date: 20090206
  Receipt Date: 20090127
  Transmission Date: 20090719
  Serious: Yes (Life-Threatening)
  Sender: FDA-Public Use
  Company Number: 2008-04046

PATIENT
  Age: 80 Year
  Sex: Female
  Weight: 39 kg

DRUGS (21)
  1. VELCADE [Suspect]
     Indication: MULTIPLE MYELOMA
     Dosage: 0.7 MG/M2, INTRAVENOUS
     Route: 042
     Dates: start: 20080317, end: 20080410
  2. LASIX [Concomitant]
  3. ISOSORBIDE DINITRATE [Concomitant]
  4. PURSENNID (SENNA LEAF) [Concomitant]
  5. MAGNESIUM OXIDE (MAGNESIUM OXIDE) [Concomitant]
  6. LAC-B [Concomitant]
  7. FOLIC ACID [Concomitant]
  8. ZANTAC 150 [Concomitant]
  9. DIFLUCAN [Concomitant]
  10. ZOLPIDEM TARTRATE [Concomitant]
  11. XYLOCAINE [Concomitant]
  12. HACHIAZULE (SODIUM BICARBONATE, SODIUM GUALENATE) [Concomitant]
  13. LEVOFLOXACIN [Concomitant]
  14. SODIUM BICARBONATE [Concomitant]
  15. SOLDEM 1 (GLUCOSE, SODIUM LACTATE, SODIUM CHLORIDE) [Concomitant]
  16. NASEA (RAMOSETRON HYDROCHLORIDE) [Concomitant]
  17. SEISHOKU (SODIUM CHLORIDE) [Concomitant]
  18. DEXAMETHASONE [Concomitant]
  19. DEPAS (ETIZOLAM) [Concomitant]
  20. MARCAINE [Concomitant]
  21. SODIUM BICARBONATE [Concomitant]

REACTIONS (3)
  - ACUTE MYOCARDIAL INFARCTION [None]
  - ANGINA PECTORIS [None]
  - CORONARY ARTERY STENOSIS [None]
